FAERS Safety Report 8474212-4 (Version None)
Quarter: 2012Q2

REPORT INFORMATION
  Report Type: 
  Country: None (occurrence: None)
  Receive Date: 20120628
  Receipt Date: 20120619
  Transmission Date: 20120825
  Serious: Yes (Hospitalization)
  Sender: FDA-Public Use
  Company Number: US-BAYER-201037744NA

PATIENT
  Age: 47 Year
  Sex: Female

DRUGS (18)
  1. AMBIEN CR [Concomitant]
     Dosage: 12.5 MG, LONG TERM USE
     Route: 048
  2. BUPROPION HCL [Concomitant]
     Dosage: 300 MG, DAILY
     Route: 048
  3. VIVELLE-DOT [Concomitant]
     Dosage: UNK
  4. UROCRIT-K [Concomitant]
     Dosage: 10 MEQ, LONG TERM USE
     Route: 048
  5. HYDROCODONE BITARTRATE + ACETAMINOPHEN [Concomitant]
     Dosage: 7.5/500 MG
     Route: 048
     Dates: start: 20070619, end: 20070627
  6. SYNTHROID [Concomitant]
     Dosage: 75 ?G, DAILY
     Route: 048
  7. YAZ [Suspect]
     Dosage: UNK UNK, UNK
     Route: 048
     Dates: start: 20051001, end: 20070621
  8. SALAGEN [Concomitant]
     Dosage: 7.5 MG, THREE TIMES DAILY
     Route: 048
  9. PERI-COLACE [Concomitant]
     Route: 048
  10. YASMIN [Suspect]
     Dosage: UNK UNK, UNK
     Route: 048
     Dates: start: 20051001, end: 20070621
  11. TOBRADEX [Concomitant]
     Dosage: UNK
     Dates: start: 20061118, end: 20070507
  12. PROCHLORPERAZINE [Concomitant]
     Dosage: 25 MG, UNK
     Dates: start: 20070619
  13. PLAQUENIL [Concomitant]
     Dosage: 200 MG, TWICE DAILY
     Route: 048
  14. MULTI-VITAMIN [Concomitant]
     Dosage: ONE DAILY
  15. YAZ [Suspect]
  16. BICITRA [Concomitant]
     Dosage: 30 MEQ, THREE TIMES DAILY
     Route: 048
  17. LOTEMAX [Concomitant]
     Dosage: 0.5 %, UNK
     Route: 047
     Dates: start: 20070508
  18. MELOXICAM [Concomitant]
     Dosage: 15 MG, DAILY
     Route: 048

REACTIONS (8)
  - CEREBROVASCULAR ACCIDENT [None]
  - PAIN [None]
  - FEAR [None]
  - EMBOLIC STROKE [None]
  - ANXIETY [None]
  - PSYCHOLOGICAL TRAUMA [None]
  - ANHEDONIA [None]
  - EMOTIONAL DISTRESS [None]
